FAERS Safety Report 5563502-0 (Version None)
Quarter: 2007Q4

REPORT INFORMATION
  Report Type: 
  Country: None (occurrence: None)
  Receive Date: 20071217
  Receipt Date: 20070601
  Transmission Date: 20080405
  Serious: No
  Sender: FDA-Public Use
  Company Number: US-ASTRAZENECA-2007UW13415

PATIENT
  Age: 48 Year
  Sex: Female
  Weight: 22.7 kg

DRUGS (8)
  1. CRESTOR [Suspect]
     Indication: BLOOD CHOLESTEROL INCREASED
     Route: 048
     Dates: start: 20070520
  2. TOPAMAX [Concomitant]
  3. CLONAZEPAM [Concomitant]
  4. MELOXICAM [Concomitant]
  5. LORTAB [Concomitant]
  6. SOMA [Concomitant]
  7. LEVAQUIN [Concomitant]
  8. MULTI-VITAMIN [Concomitant]

REACTIONS (4)
  - ANOREXIA [None]
  - ASTHENIA [None]
  - FATIGUE [None]
  - MIGRAINE [None]
